FAERS Safety Report 8282757 (Version 2)
Quarter: 2012Q4

REPORT INFORMATION
  Report Type: Report from Study
  Country: DE (occurrence: DE)
  Receive Date: 20111209
  Receipt Date: 20121022
  Transmission Date: 20130627
  Serious: Yes (Hospitalization)
  Sender: FDA-Public Use
  Company Number: DE-ROCHE-1019798

PATIENT
  Sex: Male
  Weight: 90 kg

DRUGS (7)
  1. BEVACIZUMAB [Suspect]
     Indication: COLON CANCER METASTATIC
     Dosage: 5 mg/kg, cyclic
     Route: 042
     Dates: start: 20080422, end: 20110913
  2. BEVACIZUMAB [Suspect]
     Route: 042
     Dates: start: 20120417, end: 20120821
  3. FOLIC ACID [Suspect]
     Indication: COLON CANCER METASTATIC
     Route: 042
     Dates: start: 20080422, end: 20110913
  4. FOLIC ACID [Suspect]
     Route: 042
     Dates: start: 20120417, end: 20120821
  5. FLUOROURACIL [Suspect]
     Indication: COLON CANCER METASTATIC
     Route: 042
     Dates: start: 20080422, end: 20110913
  6. FLUOROURACIL [Suspect]
     Route: 042
     Dates: start: 20120417, end: 20120821
  7. OXALIPLATIN [Suspect]
     Indication: COLON CANCER METASTATIC
     Route: 042
     Dates: start: 20120821

REACTIONS (2)
  - Enthesopathy [Unknown]
  - Musculoskeletal pain [Recovered/Resolved]
